FAERS Safety Report 9924519 (Version 1)
Quarter: 2014Q1

REPORT INFORMATION
  Report Type: Spontaneous
  Country: US (occurrence: US)
  Receive Date: 20140226
  Receipt Date: 20140226
  Transmission Date: 20141002
  Serious: No
  Sender: FDA-Public Use
  Company Number: US-PFIZER INC-2014049878

PATIENT
  Age: 56 Year
  Sex: Female
  Weight: 54.42 kg

DRUGS (2)
  1. XALATAN [Suspect]
     Indication: GLAUCOMA
     Dosage: UNK
     Route: 047
     Dates: start: 2003
  2. XALATAN [Suspect]
     Dosage: 1 GTT, 1X/DAY
     Route: 047

REACTIONS (1)
  - Nasopharyngitis [Recovering/Resolving]
